FAERS Safety Report 5006142-4 (Version None)
Quarter: 2006Q1

REPORT INFORMATION
  Report Type: 
  Country: None (occurrence: None)
  Receive Date: 20060328
  Receipt Date: 20060116
  Transmission Date: 20060701
  Serious: No
  Sender: FDA-Public Use
  Company Number: 06P-163-0322378-00

PATIENT
  Age: 75 Year
  Sex: Male
  Weight: 78.0187 kg

DRUGS (12)
  1. HUMIRA [Suspect]
     Indication: RHEUMATOID ARTHRITIS
     Dosage: 40 MG, 1 IN 2 WK, SUBCUTANEOUS
     Route: 058
     Dates: start: 20031227, end: 20050630
  2. METHOTREXATE SODIUM [Concomitant]
  3. ALLOPURINOL [Concomitant]
  4. PREDNISONE [Concomitant]
  5. BENAZEPRIL HYDROCHLORIDE [Concomitant]
  6. FOLATE [Concomitant]
  7. PRIMIDONE [Concomitant]
  8. DYAZIDE [Concomitant]
  9. SERETIDE MITE [Concomitant]
  10. ALLERGY SHOTS [Concomitant]
  11. VICODIN [Concomitant]
  12. PROCHLORPERAZINE [Concomitant]

REACTIONS (4)
  - FATIGUE [None]
  - LYMPHOMA [None]
  - NAUSEA [None]
  - PLEURAL EFFUSION [None]
